FAERS Safety Report 8820157 (Version 1)
Quarter: 2012Q4

REPORT INFORMATION
  Report Type: 
  Country: US (occurrence: US)
  Receive Date: 20121001
  Receipt Date: 20121001
  Transmission Date: 20130627
  Serious: Yes (Hospitalization)
  Sender: FDA-Public Use
  Company Number: US-ROCHE-1131070

PATIENT
  Sex: Male

DRUGS (3)
  1. RITUXAN [Suspect]
     Indication: ANAEMIA HAEMOLYTIC AUTOIMMUNE
     Route: 065
  2. RITUXAN [Suspect]
     Indication: OFF LABEL USE
  3. PREDNISONE [Concomitant]
     Route: 065

REACTIONS (6)
  - Fatigue [Unknown]
  - Syncope [Unknown]
  - Haematocrit decreased [Unknown]
  - Jaundice [Unknown]
  - Paroxysmal nocturnal haemoglobinuria [Unknown]
  - Haematuria [Unknown]
